FAERS Safety Report 7308102-7 (Version None)
Quarter: 2011Q1

REPORT INFORMATION
  Report Type: 
  Country: None (occurrence: None)
  Receive Date: 20110223
  Receipt Date: 20110214
  Transmission Date: 20110831
  Serious: Yes (Other)
  Sender: FDA-Public Use
  Company Number: US-JNJFOC-20110204365

PATIENT
  Sex: Female

DRUGS (11)
  1. ERGOCALCIFEROL [Concomitant]
     Indication: NUTRITIONAL SUPPORT
  2. CALCIUM [Concomitant]
     Indication: NUTRITIONAL SUPPORT
  3. OLMESARTAN MEDOXOMIL [Concomitant]
     Indication: HYPERTENSION
  4. METOPROLOL [Concomitant]
     Indication: HYPERTENSION
  5. LORATADINE [Concomitant]
     Indication: GASTROOESOPHAGEAL REFLUX DISEASE
  6. REMICADE [Suspect]
     Indication: PRODUCT USED FOR UNKNOWN INDICATION
     Route: 042
  7. HUMIRA [Suspect]
     Indication: CROHN'S DISEASE
  8. VALIUM [Concomitant]
     Indication: INSOMNIA
  9. ASPIRIN [Concomitant]
     Indication: CARDIAC DISORDER
  10. FISH OIL [Concomitant]
     Indication: NUTRITIONAL SUPPORT
  11. AZATHIOPRINE [Concomitant]
     Indication: CROHN'S DISEASE

REACTIONS (2)
  - RESPIRATORY FAILURE [None]
  - THROAT TIGHTNESS [None]
